FAERS Safety Report 7640721-0 (Version None)
Quarter: 2011Q3

REPORT INFORMATION
  Report Type: 
  Country: None (occurrence: None)
  Receive Date: 20110728
  Receipt Date: 20100913
  Transmission Date: 20111222
  Serious: Yes (Hospitalization)
  Sender: FDA-Public Use
  Company Number: US-BAYER-201027071NA

PATIENT
  Age: 32 Year
  Sex: Female
  Weight: 107 kg

DRUGS (5)
  1. MONOPRIL [Concomitant]
  2. HYDROCHLOROTHIAZIDE [Concomitant]
     Indication: HYPERTENSION
     Dosage: UNK
  3. ALBUTEROL SULFATE AUTOHALER [Concomitant]
     Indication: DYSPNOEA
     Dosage: UNK
  4. YAZ [Suspect]
     Dosage: UNK
     Route: 048
     Dates: start: 20080101, end: 20100301
  5. ATENOLOL [Concomitant]
     Indication: HYPERTENSION
     Dosage: UNK

REACTIONS (4)
  - PAIN [None]
  - CHOLELITHIASIS [None]
  - CHOLECYSTITIS CHRONIC [None]
  - CHOLECYSTITIS ACUTE [None]
